FAERS Safety Report 4947608-2 (Version None)
Quarter: 2006Q1

REPORT INFORMATION
  Report Type: 
  Country: None (occurrence: None)
  Receive Date: 20060314
  Receipt Date: 20060303
  Transmission Date: 20060701
  Serious: Yes (Death, Life-Threatening)
  Sender: FDA-Public Use
  Company Number: 060306-0000198

PATIENT
  Age: 44 Year

DRUGS (10)
  1. CLORAZEPATE DIPOTASSIUM [Suspect]
     Dosage: PO
     Route: 048
  2. AMITRIPTYLINE (AMITRIPTYLINE) [Suspect]
     Dosage: PO
     Route: 048
  3. DEXTROPROPOXYPHENE (DEXTROPROPOXYPHENE) [Suspect]
     Dosage: PO
     Route: 048
  4. OXYBUTYNIN CHLORIDE [Suspect]
     Dosage: PO
     Route: 048
  5. CYCLOBENZAPRINE HCL [Suspect]
     Dosage: PO
     Route: 048
  6. BACLOFEN [Suspect]
     Dosage: PO
     Route: 048
  7. CISAPRIDE (CISAPRIDE) [Suspect]
     Dosage: PO
     Route: 048
  8. OMEPRAZOLE [Suspect]
     Dosage: PO
     Route: 048
  9. DIOSMIN (DIOSMIN) [Suspect]
     Dosage: PO
     Route: 048
  10. GLYCOPYRRONIUM BROMIDE (GLYCOPYRRONIUM BROMIDE) [Suspect]
     Dosage: PO
     Route: 048

REACTIONS (5)
  - CARDIAC ARREST [None]
  - COMPLETED SUICIDE [None]
  - DEPRESSED LEVEL OF CONSCIOUSNESS [None]
  - GRAND MAL CONVULSION [None]
  - MULTIPLE DRUG OVERDOSE INTENTIONAL [None]
